FAERS Safety Report 4449588-5 (Version None)
Quarter: 2004Q3

REPORT INFORMATION
  Report Type: 
  Country: None (occurrence: None)
  Receive Date: 20040913
  Receipt Date: 20040913
  Transmission Date: 20050211
  Serious: Yes (Hospitalization)
  Sender: FDA-Public Use
  Company Number: None

PATIENT
  Sex: Female
  Weight: 66.2 kg

DRUGS (3)
  1. THALIDOMIDE -NOT RELATED- [Suspect]
     Indication: NON-SMALL CELL LUNG CANCER
     Dates: start: 20030303, end: 20040910
  2. CARBOPLATIN [Concomitant]
  3. IRINOTECAN [Concomitant]

REACTIONS (2)
  - DYSPNOEA EXERTIONAL [None]
  - OEDEMA PERIPHERAL [None]
